FAERS Safety Report 18176557 (Version 1)
Quarter: 2020Q3

REPORT INFORMATION
  Report Type: Spontaneous
  Country: US (occurrence: US)
  Receive Date: 20200820
  Receipt Date: 20200820
  Transmission Date: 20201103
  Serious: Yes (Other)
  Sender: FDA-Public Use
  Company Number: US-JNJFOC-20200815429

PATIENT
  Sex: Female
  Weight: 59.02 kg

DRUGS (1)
  1. DURAGESIC [Suspect]
     Active Substance: FENTANYL
     Indication: PAIN
     Route: 065

REACTIONS (3)
  - Spinal fracture [Unknown]
  - Back pain [Unknown]
  - Thrombosis [Unknown]

NARRATIVE: CASE EVENT DATE: 2013
